FAERS Safety Report 13373971 (Version 3)
Quarter: 2017Q3

REPORT INFORMATION
  Report Type: Spontaneous
  Country: US (occurrence: US)
  Receive Date: 20170327
  Receipt Date: 20170713
  Transmission Date: 20171127
  Serious: No
  Sender: FDA-Public Use
  Company Number: US-PFIZER INC-2017132416

PATIENT
  Age: 57 Year
  Sex: Female
  Weight: 98.88 kg

DRUGS (8)
  1. LYRICA [Suspect]
     Active Substance: PREGABALIN
     Indication: NEUROMYOPATHY
     Dosage: 50 MG, 1X/DAY
     Route: 048
  2. NORTRIPTYLINE [Concomitant]
     Active Substance: NORTRIPTYLINE
     Dosage: UNK
  3. HYDROXYZINE [Concomitant]
     Active Substance: HYDROXYZINE HYDROCHLORIDE
     Dosage: UNK
  4. LYRICA [Suspect]
     Active Substance: PREGABALIN
     Indication: FIBROMYALGIA
     Dosage: 50 MG, 2X/DAY
     Route: 048
     Dates: start: 20170309
  5. AMITRIPTYLINE [Concomitant]
     Active Substance: AMITRIPTYLINE
     Dosage: UNK
  6. GABAPENTIN. [Concomitant]
     Active Substance: GABAPENTIN
     Indication: RADICULOPATHY
     Dosage: UNK
  7. GABAPENTIN. [Concomitant]
     Active Substance: GABAPENTIN
     Indication: THORACIC OUTLET SYNDROME
  8. CYMBALTA [Concomitant]
     Active Substance: DULOXETINE HYDROCHLORIDE
     Dosage: UNK

REACTIONS (2)
  - Intentional product use issue [Recovered/Resolved]
  - Drug ineffective [Recovered/Resolved]

NARRATIVE: CASE EVENT DATE: 201703
